FAERS Safety Report 9133109 (Version 5)
Quarter: 2014Q1

REPORT INFORMATION
  Report Type: Report from Study
  Country: US (occurrence: US)
  Receive Date: 20130301
  Receipt Date: 20140224
  Transmission Date: 20141002
  Serious: Yes (Hospitalization, Other)
  Sender: FDA-Public Use
  Company Number: US-ACTELION-A-US2012-72875

PATIENT
  Age: 5 Year
  Sex: Female
  Weight: 39.6 kg

DRUGS (9)
  1. TRACLEER [Suspect]
     Indication: PULMONARY ARTERIAL HYPERTENSION
     Dosage: 31.25 MG, BID
     Route: 048
     Dates: start: 20090511
  2. TRACLEER [Suspect]
     Dosage: 62.5 MG, UNK
     Route: 048
  3. TRACLEER [Suspect]
     Dosage: 31.25 MG, BID
     Route: 048
     Dates: end: 20130416
  4. FLOLAN [Suspect]
     Dosage: 53 NG/KG, PER MIN
     Route: 042
     Dates: start: 20081111
  5. SILDENAFIL [Concomitant]
  6. COUMADIN [Concomitant]
  7. DIGOXIN [Concomitant]
  8. FUROSEMIDE [Concomitant]
  9. ZANTAC [Concomitant]

REACTIONS (14)
  - Clostridium difficile infection [Recovered/Resolved]
  - Upper respiratory tract infection [Unknown]
  - Liver function test abnormal [Recovered/Resolved]
  - Aspartate aminotransferase increased [Recovered/Resolved]
  - Alanine aminotransferase increased [Recovered/Resolved]
  - Catheter site infection [Not Recovered/Not Resolved]
  - Dehydration [Recovered/Resolved]
  - Viral infection [Unknown]
  - Nausea [Unknown]
  - Vomiting [Unknown]
  - Abdominal pain [Recovered/Resolved]
  - Application site odour [Unknown]
  - Injection site discolouration [Unknown]
  - Blood alkaline phosphatase increased [Recovered/Resolved]
